FAERS Safety Report 4953156-6 (Version None)
Quarter: 2006Q1

REPORT INFORMATION
  Report Type: 
  Country: None (occurrence: None)
  Receive Date: 20060324
  Receipt Date: 20050823
  Transmission Date: 20060701
  Serious: Yes (Other)
  Sender: FDA-Public Use
  Company Number: US-MERCK-0508USA03918

PATIENT
  Age: 72 Year
  Sex: Female
  Weight: 68 kg

DRUGS (27)
  1. VIOXX [Suspect]
     Indication: OSTEOARTHRITIS
     Route: 048
     Dates: start: 20000413, end: 20040823
  2. PREVACID [Concomitant]
     Indication: GASTROOESOPHAGEAL REFLUX DISEASE
     Route: 065
     Dates: end: 20040501
  3. DITROPAN [Concomitant]
     Indication: URINARY INCONTINENCE
     Route: 065
  4. TENORMIN [Concomitant]
     Indication: MUSCLE RELAXANT THERAPY
     Route: 065
     Dates: start: 19860101
  5. TENORMIN [Concomitant]
     Indication: TACHYCARDIA
     Route: 065
     Dates: start: 19860101
  6. AGGRENOX [Concomitant]
     Route: 065
  7. DYAZIDE [Concomitant]
     Indication: VERTIGO
     Route: 065
  8. PREMARIN [Concomitant]
     Indication: HORMONE LEVEL ABNORMAL
     Route: 065
  9. CYCLOBENZAPRINE HYDROCHLORIDE [Concomitant]
     Route: 065
  10. RANITIDINE [Concomitant]
     Route: 065
  11. METHOCARBAMOL [Concomitant]
     Route: 065
  12. MECLIZINE [Concomitant]
     Route: 065
  13. TRANSDERM-NITRO [Concomitant]
     Route: 065
  14. TRIAMCINOLONE ACETONIDE [Concomitant]
     Route: 065
  15. METHYLPREDNISOLONE [Concomitant]
     Route: 065
  16. PREDNISONE [Concomitant]
     Route: 065
  17. FLUCINOM [Concomitant]
     Route: 065
  18. DIFLUCAN [Concomitant]
     Route: 065
  19. TRIAMTERENE [Concomitant]
     Route: 065
  20. CLONAZEPAM [Concomitant]
     Route: 065
  21. LORAZEPAM [Concomitant]
     Route: 065
  22. LIDOCAINE [Concomitant]
     Route: 065
  23. DETROL [Concomitant]
     Route: 065
  24. PENICILLIN (UNSPECIFIED) [Concomitant]
     Route: 065
  25. HYDROCODONE BITARTRATE [Concomitant]
     Route: 065
  26. TRIMOX [Concomitant]
     Route: 065
  27. ACETAMINOPHEN [Concomitant]
     Route: 065

REACTIONS (11)
  - BLOOD CHOLESTEROL INCREASED [None]
  - CARDIAC DISORDER [None]
  - CEREBROVASCULAR ACCIDENT [None]
  - COORDINATION ABNORMAL [None]
  - DEPRESSION [None]
  - DIZZINESS [None]
  - LACUNAR INFARCTION [None]
  - NEUROPATHY PERIPHERAL [None]
  - OEDEMA PERIPHERAL [None]
  - TRANSIENT ISCHAEMIC ATTACK [None]
  - VERTIGO [None]
